FAERS Safety Report 6987206-2 (Version None)
Quarter: 2010Q3

REPORT INFORMATION
  Report Type: 
  Country: None (occurrence: None)
  Receive Date: 20100827
  Receipt Date: 20100121
  Transmission Date: 20110219
  Serious: Yes (Other)
  Sender: FDA-Public Use
  Company Number: AMAG201000047

PATIENT
  Age: 61 Year
  Sex: Male
  Weight: 145.6 kg

DRUGS (17)
  1. FERAHEME [Suspect]
     Indication: ANAEMIA OF CHRONIC DISEASE
     Dosage: 15 ML, SINGLE, INTRAVENOUS
     Route: 042
     Dates: start: 20100119, end: 20100119
  2. FERAHEME [Suspect]
     Indication: IRON DEFICIENCY ANAEMIA
     Dosage: 15 ML, SINGLE, INTRAVENOUS
     Route: 042
     Dates: start: 20100119, end: 20100119
  3. ACCUPRIL [Concomitant]
  4. CALCIUM ACETATE (CALCIUM ACETATE) [Concomitant]
  5. COUMADIN [Concomitant]
  6. CRESTOR [Concomitant]
  7. FLOMAX [Concomitant]
  8. LANTUS [Concomitant]
  9. LEVOTHYROXINE SODIUM [Concomitant]
  10. METOPROLOL SUCCINATE [Concomitant]
  11. NOVOLOG [Concomitant]
  12. PEPCID (CALCIUM CARBONATE, FAMOTIDINE, MAGNESIUM HYDROXIDE) [Concomitant]
  13. REGLAN [Concomitant]
  14. SINGULAIR [Concomitant]
  15. TRAMADOL/ACETAMINOPHEN (TRAMADOL HYDROCHLORIDE) [Concomitant]
  16. VITAMIN B COMPLEX (NICOTINAMIDE, PYRIDOXINE HYDROCHLORIDE, RIBOFLAVIN, [Concomitant]
  17. METOLAZONE [Concomitant]

REACTIONS (9)
  - ABDOMINAL PAIN [None]
  - BLOOD PRESSURE DECREASED [None]
  - CHEST PAIN [None]
  - DIARRHOEA [None]
  - FLUSHING [None]
  - HYPERHIDROSIS [None]
  - HYPERSENSITIVITY [None]
  - PRURITUS [None]
  - RETCHING [None]
